FAERS Safety Report 20175565 (Version 3)
Quarter: 2022Q2

REPORT INFORMATION
  Report Type: Report from Study
  Country: CA (occurrence: CA)
  Receive Date: 20211213
  Receipt Date: 20220408
  Transmission Date: 20220720
  Serious: Yes (Other)
  Sender: FDA-Public Use
  Company Number: CA-NOVARTISPH-NVSC2019CA032939

PATIENT
  Age: 25 Year
  Sex: Female

DRUGS (10)
  1. ILARIS [Suspect]
     Active Substance: CANAKINUMAB
     Indication: Muckle-Wells syndrome
     Dosage: 150 MG, EVERY 6 WEEKS
     Route: 058
     Dates: start: 20190801
  2. ILARIS [Suspect]
     Active Substance: CANAKINUMAB
     Dosage: 150 MG, EVERY 8 WEEKS
     Route: 058
     Dates: start: 20191010
  3. ILARIS [Suspect]
     Active Substance: CANAKINUMAB
     Dosage: 150 MG, EVERY 8 WEEKS
     Route: 058
     Dates: start: 20191203
  4. ILARIS [Suspect]
     Active Substance: CANAKINUMAB
     Dosage: UNK,  EVERY 8 WEEKS
     Route: 058
     Dates: start: 20200121
  5. ILARIS [Suspect]
     Active Substance: CANAKINUMAB
     Dosage: 300 MG, EVERY 8 WEEKS
     Route: 058
     Dates: start: 20200708
  6. ILARIS [Suspect]
     Active Substance: CANAKINUMAB
     Dosage: 300 MG, EVERY 8 WEEKS
     Route: 058
     Dates: start: 20210422
  7. ILARIS [Suspect]
     Active Substance: CANAKINUMAB
     Dosage: 300 MG, EVERY 6 WEEKS
     Route: 058
  8. COLCHICINE [Suspect]
     Active Substance: COLCHICINE
     Indication: Product used for unknown indication
     Dosage: UNK
     Route: 065
  9. KINERET [Concomitant]
     Active Substance: ANAKINRA
     Indication: Product used for unknown indication
     Dosage: UNK
     Route: 065
     Dates: start: 201902
  10. TYLENOL [Concomitant]
     Active Substance: ACETAMINOPHEN
     Indication: Product used for unknown indication
     Dosage: UNK
     Route: 065

REACTIONS (19)
  - Angioedema [Unknown]
  - Rash erythematous [Unknown]
  - Fatigue [Recovered/Resolved]
  - Malaise [Unknown]
  - Condition aggravated [Unknown]
  - Eye irritation [Unknown]
  - Skin irritation [Unknown]
  - Myalgia [Unknown]
  - Skin disorder [Unknown]
  - Muckle-Wells syndrome [Unknown]
  - Arthralgia [Unknown]
  - Bone pain [Recovered/Resolved]
  - Hypertension [Unknown]
  - Pyrexia [Recovered/Resolved]
  - Dermatitis [Unknown]
  - Conjunctivitis [Unknown]
  - Urticaria [Recovered/Resolved]
  - Inappropriate schedule of product administration [Unknown]
  - Therapeutic response shortened [Unknown]

NARRATIVE: CASE EVENT DATE: 20191010
